FAERS Safety Report 9629489 (Version 11)
Quarter: 2015Q2

REPORT INFORMATION
  Report Type: Report from Study
  Country: CA (occurrence: CA)
  Receive Date: 20131017
  Receipt Date: 20150518
  Transmission Date: 20150821
  Serious: Yes (Other)
  Sender: FDA-Public Use
  Company Number: CA-ROCHE-1242749

PATIENT
  Age: 72 Year
  Sex: Female
  Weight: 69 kg

DRUGS (6)
  1. VEMURAFENIB [Suspect]
     Active Substance: VEMURAFENIB
     Indication: MALIGNANT MELANOMA
     Dosage: DATE OF LAST DOSE PRIOR TO SAE : 04/JAN/2012
     Route: 048
     Dates: start: 20111209
  2. VEMURAFENIB [Suspect]
     Active Substance: VEMURAFENIB
     Dosage: DATE OF LAST DOSE PRIOR TO SAE : 09/JAN/2013
     Route: 048
     Dates: start: 20120104
  3. VEMURAFENIB [Suspect]
     Active Substance: VEMURAFENIB
     Dosage: DATE OF LAST DOSE PRIOR TO SAE : 25/NOV/2011
     Route: 048
     Dates: start: 20111116
  4. ELTROXIN [Concomitant]
     Active Substance: LEVOTHYROXINE
     Route: 065
     Dates: start: 2001
  5. FERROUS GLUCONATE [Concomitant]
     Active Substance: FERROUS GLUCONATE
     Route: 065
     Dates: start: 20120627
  6. VALSARTAN HCT [Concomitant]
     Active Substance: HYDROCHLOROTHIAZIDE\VALSARTAN
     Dosage: DAILY DOSE 160 MG/12.5MG
     Route: 065
     Dates: start: 200608

REACTIONS (1)
  - Breast cancer [Recovered/Resolved]

NARRATIVE: CASE EVENT DATE: 20121114
